FAERS Safety Report 17636551 (Version 1)
Quarter: 2020Q2

REPORT INFORMATION
  Report Type: Report from Study
  Country: KR (occurrence: KR)
  Receive Date: 20200407
  Receipt Date: 20200407
  Transmission Date: 20200713
  Serious: Yes (Other)
  Sender: FDA-Public Use
  Company Number: KR-TEVA-2020-KR-1218827

PATIENT
  Age: 13 Year
  Sex: Male

DRUGS (6)
  1. DOXORUBICIN [Suspect]
     Active Substance: DOXORUBICIN
     Indication: OSTEOSARCOMA
     Dosage: 37.5 MG/M2 PER DAY ON DAYS 1 AND 2
     Route: 065
  2. CISPLATIN. [Suspect]
     Active Substance: CISPLATIN
     Indication: OSTEOSARCOMA
     Dosage: 4-H INFUSION OF 60 MG/M2 PER DAY ON DAYS 1 AND 2
     Route: 041
  3. METHOTREXATE. [Suspect]
     Active Substance: METHOTREXATE
     Indication: OSTEOSARCOMA
     Dosage: 12 G/M2 OVER 4 HOURS
     Route: 042
  4. DEXRAZOXANE. [Concomitant]
     Active Substance: DEXRAZOXANE
     Indication: CARDIOVASCULAR EVENT PROPHYLAXIS
     Route: 065
  5. IFOSFAMIDE. [Suspect]
     Active Substance: IFOSFAMIDE
     Indication: OSTEOSARCOMA
     Dosage: 9 G/M2 (4-H INFUSION OF 3 G/M2 PER DAY FOR 3 DAYS)
     Route: 050
  6. MESNA. [Concomitant]
     Active Substance: MESNA
     Indication: RENAL DISORDER PROPHYLAXIS
     Route: 065

REACTIONS (2)
  - Neutropenia [Unknown]
  - Ventricular dysfunction [Recovering/Resolving]
